FAERS Safety Report 9937342 (Version 2)
Quarter: 2014Q2

REPORT INFORMATION
  Report Type: Spontaneous
  Country: US (occurrence: US)
  Receive Date: 20140302
  Receipt Date: 20140618
  Transmission Date: 20141212
  Serious: Yes (Other)
  Sender: FDA-Public Use
  Company Number: US-AMGEN-USASP2014013184

PATIENT
  Age: 72 Year
  Sex: Female

DRUGS (4)
  1. PROLIA [Suspect]
     Indication: OSTEOPOROSIS
     Dosage: UNK
     Route: 065
  2. CALCIUM [Concomitant]
  3. LISINOPRIL [Concomitant]
  4. CLONAZEPAM [Concomitant]
     Dosage: UNK UNK, QHS

REACTIONS (30)
  - Myocardial infarction [Unknown]
  - Aphagia [Unknown]
  - Neck pain [Unknown]
  - Oral pain [Not Recovered/Not Resolved]
  - Spinal pain [Unknown]
  - Musculoskeletal chest pain [Unknown]
  - Weight decreased [Not Recovered/Not Resolved]
  - Jaw disorder [Unknown]
  - Pain in jaw [Unknown]
  - Tongue discolouration [Recovering/Resolving]
  - Glossodynia [Recovering/Resolving]
  - Infection [Unknown]
  - Mastication disorder [Unknown]
  - Device failure [Unknown]
  - Headache [Unknown]
  - Ear pain [Unknown]
  - Pain [Unknown]
  - Malaise [Unknown]
  - Peripheral coldness [Unknown]
  - Feeling hot [Unknown]
  - Blood pressure abnormal [Unknown]
  - Nervousness [Unknown]
  - Hypoaesthesia [Unknown]
  - Macule [Unknown]
  - Feeling cold [Unknown]
  - Burning sensation [Unknown]
  - Exostosis [Unknown]
  - Bone pain [Unknown]
  - Musculoskeletal pain [Unknown]
  - Pain in extremity [Unknown]
